FAERS Safety Report 8617039 (Version 3)
Quarter: 2012Q4

REPORT INFORMATION
  Report Type: 
  Country: US (occurrence: US)
  Receive Date: 20120615
  Receipt Date: 20120906
  Transmission Date: 20130627
  Serious: Yes (Other)
  Sender: FDA-Public Use
  Company Number: US-BAYER-2012-058650

PATIENT
  Age: 34 Year
  Sex: Female
  Weight: 79.37 kg

DRUGS (7)
  1. MIRENA [Suspect]
     Indication: CONTRACEPTION
     Dosage: 20 mcg/24hr, CONT
     Route: 015
     Dates: start: 20100622, end: 20110812
  2. MIRENA [Suspect]
     Indication: CONTRACEPTION
     Dosage: 20 mcg/24hr, CONT
     Route: 015
     Dates: start: 20110907, end: 20120612
  3. TOPAMAX [Concomitant]
     Indication: MIGRAINE
  4. PRILOSEC [Concomitant]
     Indication: GASTROOESOPHAGEAL REFLUX DISEASE
  5. ALLEGRA [Concomitant]
     Indication: MULTIPLE ALLERGIES
  6. DIFLUCAN [Concomitant]
     Indication: FUNGAL INFECTION
  7. CIPRO [Concomitant]
     Indication: URINARY TRACT INFECTION
     Dosage: 500 mg, UNK
     Dates: start: 20120614, end: 20120614

REACTIONS (2)
  - Ruptured ectopic pregnancy [None]
  - Device dislocation [None]
